FAERS Safety Report 8305738-1 (Version None)
Quarter: 2012Q2

REPORT INFORMATION
  Report Type: 
  Country: None (occurrence: None)
  Receive Date: 20120423
  Receipt Date: 20120413
  Transmission Date: 20120825
  Serious: Yes (Other)
  Sender: FDA-Public Use
  Company Number: IT-NOVOPROD-349493

PATIENT
  Age: 74 Year
  Sex: Female

DRUGS (1)
  1. VAGIFEM [Suspect]
     Indication: PRODUCT USED FOR UNKNOWN INDICATION
     Route: 065

REACTIONS (2)
  - ADNEXA UTERI CYST [None]
  - CARBOHYDRATE ANTIGEN 125 INCREASED [None]
